FAERS Safety Report 6865668-9 (Version None)
Quarter: 2010Q3

REPORT INFORMATION
  Report Type: 
  Country: None (occurrence: None)
  Receive Date: 20100721
  Receipt Date: 20080428
  Transmission Date: 20110219
  Serious: No
  Sender: FDA-Public Use
  Company Number: US-PFIZER INC-2008037594

PATIENT
  Sex: Male
  Weight: 104.54 kg

DRUGS (9)
  1. CHANTIX [Suspect]
     Indication: SMOKING CESSATION THERAPY
     Dates: start: 20080416
  2. AVAPRO [Concomitant]
     Indication: HYPERTENSION
  3. WARFARIN SODIUM [Concomitant]
  4. BUMEX [Concomitant]
  5. ZOCOR [Concomitant]
  6. DIGOXIN [Concomitant]
  7. ISOSORBIDE [Concomitant]
  8. METFORMIN [Concomitant]
  9. CALCIUM [Concomitant]

REACTIONS (1)
  - INSOMNIA [None]
